FAERS Safety Report 5468941-4 (Version None)
Quarter: 2007Q3

REPORT INFORMATION
  Report Type: 
  Country: None (occurrence: None)
  Receive Date: 20070926
  Receipt Date: 20070920
  Transmission Date: 20080115
  Serious: Yes (Death)
  Sender: FDA-Public Use
  Company Number: DE-ABBOTT-07P-062-0417050-00

PATIENT
  Sex: Male
  Weight: 123 kg

DRUGS (7)
  1. HUMIRA [Suspect]
     Indication: RHEUMATOID ARTHRITIS
     Route: 058
     Dates: start: 20060328
  2. SULFASALAZINE [Concomitant]
     Indication: RHEUMATOID ARTHRITIS
     Route: 048
  3. NSAID'S [Concomitant]
     Indication: RHEUMATOID ARTHRITIS
  4. SYSTEMIC GLUCOCORTICOID [Concomitant]
     Indication: RHEUMATOID ARTHRITIS
     Route: 048
  5. ENALAPRIL MALEATE [Concomitant]
     Indication: HYPERTONIA
     Route: 048
  6. INSULIN [Concomitant]
     Indication: DIABETES MELLITUS
     Route: 058
  7. METFORMIN [Concomitant]
     Indication: DIABETES MELLITUS
     Route: 048

REACTIONS (3)
  - NAUSEA [None]
  - RASH PRURITIC [None]
  - SUDDEN CARDIAC DEATH [None]
